FAERS Safety Report 6727110-8 (Version None)
Quarter: 2010Q2

REPORT INFORMATION
  Report Type: 
  Country: None (occurrence: None)
  Receive Date: 20100517
  Receipt Date: 20100510
  Transmission Date: 20101027
  Serious: Yes (Other)
  Sender: FDA-Public Use
  Company Number: US-BAYER-201022105NA

PATIENT
  Age: 31 Year
  Sex: Female

DRUGS (1)
  1. BETASERON [Suspect]
     Indication: MULTIPLE SCLEROSIS
     Route: 058

REACTIONS (3)
  - FATIGUE [None]
  - GROIN PAIN [None]
  - PANCYTOPENIA [None]
